FAERS Safety Report 7973778-8 (Version None)
Quarter: 2011Q4

REPORT INFORMATION
  Report Type: 
  Country: None (occurrence: None)
  Receive Date: 20111213
  Receipt Date: 20111207
  Transmission Date: 20120403
  Serious: Yes (Hospitalization)
  Sender: FDA-Public Use
  Company Number: US-GILEAD-2011-0047425

PATIENT
  Sex: Female

DRUGS (15)
  1. VENTOLIN [Concomitant]
  2. DIGOXIN [Concomitant]
  3. LASIX [Concomitant]
  4. SPIRIVA [Concomitant]
  5. LETAIRIS [Suspect]
     Indication: PULMONARY HYPERTENSION
     Dosage: 7.5 MG, UNK
     Route: 048
     Dates: start: 20110320
  6. ADVAIR DISKUS 100/50 [Concomitant]
  7. ASPIRIN [Concomitant]
  8. VITAMIN C                          /00008001/ [Concomitant]
  9. OXYGEN [Concomitant]
  10. MINERAL OIL EMULSION [Concomitant]
  11. PRILOSEC [Concomitant]
  12. SIMVASTATIN [Concomitant]
  13. SPIRONOLACTONE [Concomitant]
  14. ADCIRCA [Concomitant]
  15. DULCOLAX [Concomitant]

REACTIONS (1)
  - HAEMORRHAGE [None]
